FAERS Safety Report 19013243 (Version 5)
Quarter: 2021Q2

REPORT INFORMATION
  Report Type: Report from Study
  Country: RO (occurrence: RO)
  Receive Date: 20210315
  Receipt Date: 20210517
  Transmission Date: 20210717
  Serious: Yes (Death, Hospitalization)
  Sender: FDA-Public Use
  Company Number: RO-PFIZER INC-2021114074

PATIENT
  Age: 47 Year
  Sex: Male
  Weight: 75 kg

DRUGS (7)
  1. GABARAN [Concomitant]
     Active Substance: GABAPENTIN
     Indication: POLYNEUROPATHY
     Dosage: UNK
     Route: 048
     Dates: start: 202008
  2. THIOSSEN [Concomitant]
     Active Substance: .ALPHA.-LIPOIC ACID
     Indication: POLYNEUROPATHY
     Dosage: UNK
     Route: 048
     Dates: start: 202008
  3. TAFAMIDIS MEGLUMINE [Suspect]
     Active Substance: TAFAMIDIS MEGLUMINE
     Indication: AMYLOIDOSIS SENILE
     Dosage: 20 MG, DAILY
     Route: 048
     Dates: start: 20200821
  4. ELIQUIS [Concomitant]
     Active Substance: APIXABAN
     Indication: ATRIAL FIBRILLATION
     Dosage: UNK
     Route: 048
     Dates: start: 20210207
  5. FUROSEMID [Concomitant]
     Active Substance: FUROSEMIDE
     Indication: CARDIAC FAILURE
     Dosage: UNK
     Route: 048
     Dates: start: 202008
  6. CORDARONE [Concomitant]
     Active Substance: AMIODARONE HYDROCHLORIDE
     Indication: ATRIAL FIBRILLATION
     Dosage: UNK
     Route: 048
     Dates: start: 20210207
  7. GUTRON [Concomitant]
     Active Substance: MIDODRINE HYDROCHLORIDE
     Indication: ORTHOSTATIC HYPOTENSION
     Dosage: UNK
     Route: 048
     Dates: start: 202008

REACTIONS (3)
  - SARS-CoV-2 test positive [Recovered/Resolved]
  - Sudden cardiac death [Fatal]
  - Atrial fibrillation [Not Recovered/Not Resolved]

NARRATIVE: CASE EVENT DATE: 20210123
